FAERS Safety Report 9152275 (Version 2)
Quarter: 2013Q1

REPORT INFORMATION
  Report Type: Spontaneous
  Country: TR (occurrence: TR)
  Receive Date: 20130308
  Receipt Date: 20130319
  Transmission Date: 20140127
  Serious: Yes (Hospitalization, Other)
  Sender: FDA-Public Use
  Company Number: TR-PFIZER INC-2013078924

PATIENT
  Sex: Female

DRUGS (1)
  1. ZITROMAX [Suspect]
     Indication: TONSILLITIS
     Dosage: QUANTITIY OF HALF SPOON
     Route: 048
     Dates: start: 20121031, end: 20121031

REACTIONS (6)
  - Urticaria [Recovered/Resolved]
  - Generalised erythema [Recovered/Resolved]
  - Blister [Recovered/Resolved]
  - Shock [Recovered/Resolved]
  - Contusion [Recovered/Resolved]
  - Feeling cold [Recovered/Resolved]
